FAERS Safety Report 4521129-3 (Version None)
Quarter: 2004Q4

REPORT INFORMATION
  Report Type: 
  Country: None (occurrence: None)
  Receive Date: 20041208
  Receipt Date: 20041204
  Transmission Date: 20050328
  Serious: Yes (Hospitalization)
  Sender: FDA-Public Use
  Company Number: TR-ROCHE-388054

PATIENT
  Age: 58 Year
  Sex: Male
  Weight: 64 kg

DRUGS (10)
  1. DACLIZUMAB [Suspect]
     Route: 042
     Dates: start: 20041014
  2. DACLIZUMAB [Suspect]
     Route: 042
     Dates: end: 20041203
  3. MYCOPHENOLATE MOFETIL [Suspect]
     Route: 048
     Dates: start: 20041013
  4. TACROLIMUS [Suspect]
     Route: 048
     Dates: start: 20041014
  5. METHYLPREDNISOLONE [Suspect]
     Route: 048
     Dates: start: 20041013
  6. ACYCLOVIR [Concomitant]
     Route: 048
     Dates: start: 20041013
  7. TRIMETHOPRIM + SULFAMETHOXAZOLE [Concomitant]
     Route: 048
     Dates: start: 20041013
  8. FLUCONAZOLE [Concomitant]
     Route: 048
     Dates: start: 20041013
  9. LANSOPRAZOLE [Concomitant]
     Route: 048
     Dates: start: 20041013
  10. ROSIGLITAZONE MALEATE [Concomitant]
     Route: 048
     Dates: start: 20041113

REACTIONS (3)
  - LUNG NEOPLASM [None]
  - PNEUMONIA [None]
  - PULMONARY CAVITATION [None]
